FAERS Safety Report 14599287 (Version 1)
Quarter: 2018Q1

REPORT INFORMATION
  Report Type: Spontaneous
  Country: US (occurrence: US)
  Receive Date: 20180305
  Receipt Date: 20180305
  Transmission Date: 20180509
  Serious: Yes (Other)
  Sender: FDA-Public Use
  Company Number: US-LPDUSPRD-20180225

PATIENT
  Age: 71 Year
  Sex: Female

DRUGS (6)
  1. VASOPRESSOR [Concomitant]
     Active Substance: UNSPECIFIED INGREDIENT
     Dosage: UNKNOWN
     Route: 065
  2. VANCOMYCIN [Suspect]
     Active Substance: VANCOMYCIN
     Dosage: UNKNOWN
     Route: 065
  3. MEROPENEM. [Suspect]
     Active Substance: MEROPENEM
     Dosage: UNKNOWN
     Route: 065
  4. ACTIVATED  PROTEIN C [Concomitant]
     Dosage: UNKNOWN
     Route: 065
  5. ANTIMICROBIAL AGENTS [Concomitant]
     Dosage: UNKNOWN
     Route: 065
  6. FUROSEMIDE INJECTION, USP (5702-25) [Suspect]
     Active Substance: FUROSEMIDE
     Dosage: UNKNOWN
     Route: 065

REACTIONS (1)
  - Linear IgA disease [Unknown]
